FAERS Safety Report 9090223 (Version 1)
Quarter: 2013Q1

REPORT INFORMATION
  Report Type: Report from Study
  Country: US (occurrence: US)
  Receive Date: 20130131
  Receipt Date: 20130131
  Transmission Date: 20140127
  Serious: No
  Sender: FDA-Public Use
  Company Number: US-ABBOTT-12P-163-1011634-00

PATIENT
  Sex: Male
  Weight: 56.75 kg

DRUGS (7)
  1. HUMIRA [Suspect]
     Indication: CROHN^S DISEASE
     Dates: start: 2008
  2. HUMIRA [Suspect]
     Indication: RHEUMATOID ARTHRITIS
  3. HUMIRA [Suspect]
     Indication: CROHN^S DISEASE
  4. HUMIRA [Suspect]
     Indication: RHEUMATOID ARTHRITIS
  5. TRUVATA [Concomitant]
     Indication: PROPHYLAXIS
  6. HYDROCODONE [Concomitant]
     Indication: RHEUMATOID ARTHRITIS
  7. ALPRAZOLAM [Concomitant]
     Indication: ANXIETY

REACTIONS (6)
  - Crohn^s disease [Not Recovered/Not Resolved]
  - Vomiting [Recovered/Resolved]
  - Diarrhoea [Not Recovered/Not Resolved]
  - Dizziness [Not Recovered/Not Resolved]
  - Arthralgia [Not Recovered/Not Resolved]
  - Abdominal pain [Not Recovered/Not Resolved]
